FAERS Safety Report 22030649 (Version 1)
Quarter: 2023Q1

REPORT INFORMATION
  Report Type: Spontaneous
  Country: US (occurrence: US)
  Receive Date: 20230223
  Receipt Date: 20230223
  Transmission Date: 20230418
  Serious: Yes (Other)
  Sender: FDA-Public Use
  Company Number: US-PFIZER INC-PV202300031729

PATIENT
  Age: 58 Year
  Sex: Female
  Weight: 82.086 kg

DRUGS (4)
  1. AZULFIDINE [Suspect]
     Active Substance: SULFASALAZINE
     Dosage: 1500 MG, 2X/DAY
     Route: 048
     Dates: start: 20160316, end: 20200201
  2. AZULFIDINE [Suspect]
     Active Substance: SULFASALAZINE
     Dosage: 1000 MG, 2X/DAY
     Route: 048
     Dates: start: 20200123, end: 20200201
  3. AZULFIDINE [Suspect]
     Active Substance: SULFASALAZINE
     Dosage: 1500 MG, 2X/DAY
     Route: 048
     Dates: start: 20200123, end: 20221101
  4. AZULFIDINE [Suspect]
     Active Substance: SULFASALAZINE
     Dosage: 2500 MG, DAILY
     Route: 048
     Dates: start: 20221101

REACTIONS (5)
  - Haemorrhage [Unknown]
  - Gastroenteritis [Unknown]
  - Conjunctivitis [Unknown]
  - Chest pain [Unknown]
  - COVID-19 [Unknown]

NARRATIVE: CASE EVENT DATE: 20170101
